FAERS Safety Report 9339533 (Version 4)
Quarter: 2013Q4

REPORT INFORMATION
  Report Type: Spontaneous
  Country: JP (occurrence: JP)
  Receive Date: 20130610
  Receipt Date: 20131028
  Transmission Date: 20140711
  Serious: Yes (Death, Hospitalization)
  Sender: FDA-Public Use
  Company Number: JP-BAYER-2013-069609

PATIENT
  Age: 71 Year
  Sex: Male
  Weight: 63.95 kg

DRUGS (24)
  1. BAYASPIRIN [Suspect]
     Dosage: DAILY DOSE 100 MG
     Route: 048
     Dates: start: 20120523, end: 20120724
  2. ACETYLSALICYLIC ACID [Suspect]
  3. FUROSEMIDE [Suspect]
     Dosage: 20 MG, QD
     Route: 048
     Dates: start: 20120719, end: 20120724
  4. LOXONIN [Suspect]
     Indication: PAIN
     Dosage: 60 MG, QD
     Route: 048
     Dates: start: 20120613, end: 20120718
  5. ISOSORBIDE DINITRATE [Suspect]
     Dosage: 1 DF, QD
     Route: 062
     Dates: start: 20120719, end: 20120724
  6. NIKORANMART [Suspect]
     Dosage: 5 MG, TID
     Route: 048
     Dates: start: 20120719, end: 20120724
  7. LANSOPRAZOLE [Suspect]
     Dosage: 15 MG, QD
     Route: 048
     Dates: start: 20120719, end: 20120724
  8. COROHERSER [Suspect]
     Dosage: 100 MG, QD
     Route: 048
     Dates: start: 20120719, end: 20120724
  9. APORASNON [Suspect]
     Dosage: 25 MG, QD
     Route: 048
     Dates: start: 20120719, end: 20120724
  10. TULOBUTEROL [Suspect]
     Dosage: DAILY DOSE 2 MG
     Route: 062
     Dates: start: 20120719, end: 20120724
  11. ALOSITOL [Suspect]
     Dosage: 100 MG, QD
     Route: 048
     Dates: start: 20120719, end: 20120723
  12. WARFARIN [Suspect]
     Dosage: 1.75 MG, QD
     Route: 048
     Dates: start: 20120606, end: 20120727
  13. RINGEREAZE [Suspect]
     Indication: PAIN
     Dosage: 60 MG, QD
     Route: 048
     Dates: start: 20120719, end: 20120724
  14. PLAVIX [Concomitant]
     Dosage: 75 MG, QD
     Route: 048
     Dates: end: 20120801
  15. LENDORMIN [Concomitant]
     Indication: INSOMNIA
     Dosage: 0.25 MG, QD
     Route: 048
     Dates: start: 20120603, end: 20120724
  16. SENNOSIDE [Concomitant]
     Indication: CONSTIPATION
     Dosage: 12 MG, QD
     Route: 048
     Dates: start: 20120603, end: 20120724
  17. TAKEPRON [Concomitant]
     Dosage: 15 MG, QD
     Route: 048
     Dates: end: 20120718
  18. LASIX [Concomitant]
     Dosage: 10 MG, QD
     Route: 048
     Dates: end: 20120718
  19. ALDACTONE A [Concomitant]
     Dosage: 25 MG, QD
     Route: 048
     Dates: end: 20120718
  20. HERBESSER R [Concomitant]
     Dosage: 100 MG, QD
     Route: 048
     Dates: end: 20120718
  21. HOKUNALIN [Concomitant]
     Dosage: 2 DF, QD
     Route: 062
     Dates: end: 20120718
  22. FRANDOL [Concomitant]
     Dosage: 1 DF, QD
     Route: 062
     Dates: end: 20120718
  23. ZYLORIC [Concomitant]
     Dosage: 100 MG, BID
     Route: 048
     Dates: end: 20120718
  24. SIGMART [Concomitant]
     Dosage: 5 MG, TID
     Route: 048
     Dates: end: 20120718

REACTIONS (6)
  - Hepatic failure [Fatal]
  - Disseminated intravascular coagulation [Fatal]
  - Multi-organ failure [Fatal]
  - Skin disorder [Recovering/Resolving]
  - Pyrexia [None]
  - Generalised erythema [None]
